FAERS Safety Report 22154920 (Version 15)
Quarter: 2025Q4

REPORT INFORMATION
  Report Type: Report from Study
  Country: CO (occurrence: CO)
  Receive Date: 20230330
  Receipt Date: 20251008
  Transmission Date: 20260118
  Serious: Yes (Hospitalization, Other)
  Sender: TAKEDA
  Company Number: CO-TAKEDA-2023TUS032688

PATIENT
  Age: 53 Year
  Sex: Female
  Weight: 74 kg

DRUGS (2)
  1. VEDOLIZUMAB [Suspect]
     Active Substance: VEDOLIZUMAB
     Indication: Crohn^s disease
     Dosage: 300 MILLIGRAM
     Dates: start: 20221214, end: 20240820
  2. VEDOLIZUMAB [Suspect]
     Active Substance: VEDOLIZUMAB
     Indication: Crohn^s disease
     Dosage: 108 MILLIGRAM, Q2WEEKS
     Dates: start: 20241022

REACTIONS (16)
  - Gastrointestinal obstruction [Unknown]
  - Fibromyalgia [Unknown]
  - Dizziness [Unknown]
  - Headache [Unknown]
  - Body height increased [Unknown]
  - Weight increased [Unknown]
  - Road traffic accident [Unknown]
  - Procedural pain [Unknown]
  - Aphthous ulcer [Unknown]
  - Treatment noncompliance [Unknown]
  - Product availability issue [Unknown]
  - Diarrhoea [Unknown]
  - Asthenia [Unknown]
  - Fatigue [Unknown]
  - Nausea [Unknown]
  - Influenza [Unknown]

NARRATIVE: CASE EVENT DATE: 20230315
